FAERS Safety Report 15582497 (Version 1)
Quarter: 2018Q4

REPORT INFORMATION
  Report Type: Spontaneous
  Country: US (occurrence: US)
  Receive Date: 20181104
  Receipt Date: 20181104
  Transmission Date: 20190205
  Serious: Yes (Other)
  Sender: FDA-Public Use
  Company Number: None

PATIENT
  Age: 83 Year
  Sex: Male
  Weight: 83.25 kg

DRUGS (23)
  1. ALFUZOSIN ER [Concomitant]
  2. DEXILANT [Concomitant]
     Active Substance: DEXLANSOPRAZOLE
  3. GLIPICIDE XL [Concomitant]
  4. LISINOPRIL. [Concomitant]
     Active Substance: LISINOPRIL
  5. LISINOPRIL TAB 10MG OPTUMRX DR. JOVANNA MORRISON [Suspect]
     Active Substance: LISINOPRIL
     Indication: HYPERTENSION
     Dosage: ?          QUANTITY:1 TABLET(S);?
     Route: 048
     Dates: start: 20081115, end: 20181104
  6. KLONOPIN [Concomitant]
     Active Substance: CLONAZEPAM
  7. ISOSORBIDE MONONITRATE ER [Concomitant]
     Active Substance: ISOSORBIDE MONONITRATE
  8. METFORMIN [Concomitant]
     Active Substance: METFORMIN HYDROCHLORIDE
  9. MIRALAX [Concomitant]
     Active Substance: POLYETHYLENE GLYCOL 3350
  10. ROLAIDS [Concomitant]
     Active Substance: CALCIUM CARBONATE\MAGNESIUM HYDROXIDE
  11. PLAVIX [Concomitant]
     Active Substance: CLOPIDOGREL BISULFATE
  12. METOPROLOL TARTRATE. [Concomitant]
     Active Substance: METOPROLOL TARTRATE
  13. SINEMET [Concomitant]
     Active Substance: CARBIDOPA\LEVODOPA
  14. METOPROLOL TARTRATE TABLET [Suspect]
     Active Substance: METOPROLOL TARTRATE
     Indication: MYOCARDIAL ISCHAEMIA
     Dosage: ?          QUANTITY:1 TABLET(S);?
     Route: 048
     Dates: start: 20101104, end: 20181104
  15. BACLOFEN. [Concomitant]
     Active Substance: BACLOFEN
  16. NITROSTAT [Concomitant]
     Active Substance: NITROGLYCERIN
  17. MELATONIN [Concomitant]
     Active Substance: MELATONIN
  18. SYSTANE (HYPROMELLOSE 2910 (4000 MPA.S)) [Concomitant]
     Active Substance: HYPROMELLOSE 2910 (4000 MPA.S)
  19. FIORICET [Concomitant]
     Active Substance: ACETAMINOPHEN\BUTALBITAL\CAFFEINE
  20. 81MG ASPIRIN [Concomitant]
  21. HORIZANT [Concomitant]
     Active Substance: GABAPENTIN ENACARBIL
  22. PRAVASTATIN SODIUM. [Concomitant]
     Active Substance: PRAVASTATIN SODIUM
  23. RANITIDINE. [Concomitant]
     Active Substance: RANITIDINE

REACTIONS (2)
  - Confusional state [None]
  - Product appearance confusion [None]

NARRATIVE: CASE EVENT DATE: 20181104
